FAERS Safety Report 14796384 (Version 1)
Quarter: 2018Q2

REPORT INFORMATION
  Report Type: Report from Study
  Country: US (occurrence: US)
  Receive Date: 20180423
  Receipt Date: 20180423
  Transmission Date: 20180711
  Serious: Yes (Other)
  Sender: FDA-Public Use
  Company Number: US-AMGEN-USASL2018007830

PATIENT
  Age: 58 Year
  Sex: Male
  Weight: 121.54 kg

DRUGS (2)
  1. REPATHA [Suspect]
     Active Substance: EVOLOCUMAB
     Indication: BLOOD TRIGLYCERIDES INCREASED
     Dosage: 140 MG, Q2WK
     Route: 065
     Dates: start: 20171113, end: 20180201
  2. REPATHA [Suspect]
     Active Substance: EVOLOCUMAB
     Indication: BLOOD CHOLESTEROL INCREASED

REACTIONS (5)
  - Oropharyngeal pain [Not Recovered/Not Resolved]
  - Blood glucose increased [Recovered/Resolved]
  - Tremor [Not Recovered/Not Resolved]
  - Muscle spasms [Not Recovered/Not Resolved]
  - Gait inability [Not Recovered/Not Resolved]

NARRATIVE: CASE EVENT DATE: 201801
